FAERS Safety Report 4415356-3 (Version None)
Quarter: 2004Q3

REPORT INFORMATION
  Report Type: 
  Country: None (occurrence: None)
  Receive Date: 20040730
  Receipt Date: 20040721
  Transmission Date: 20050211
  Serious: Yes (Other)
  Sender: FDA-Public Use
  Company Number: 2004225036US

PATIENT
  Sex: Female

DRUGS (5)
  1. PROVERA [Suspect]
  2. PREMPRO [Suspect]
  3. PREMARIN [Suspect]
  4. CYCRIN [Suspect]
  5. ESTROGENS [Suspect]

REACTIONS (1)
  - BREAST CANCER FEMALE [None]
